FAERS Safety Report 7238462-7 (Version None)
Quarter: 2011Q1

REPORT INFORMATION
  Report Type: 
  Country: None (occurrence: None)
  Receive Date: 20110121
  Receipt Date: 20110113
  Transmission Date: 20110831
  Serious: Yes (Other)
  Sender: FDA-Public Use
  Company Number: JP-JNJFOC-20110104855

PATIENT
  Age: 71 Year
  Sex: Female

DRUGS (1)
  1. CRAVIT [Suspect]
     Indication: PHARYNGITIS
     Route: 048

REACTIONS (2)
  - RHABDOMYOLYSIS [None]
  - POLYMYOSITIS [None]
